FAERS Safety Report 20745647 (Version 3)
Quarter: 2022Q3

REPORT INFORMATION
  Report Type: Spontaneous
  Country: KR (occurrence: KR)
  Receive Date: 20220425
  Receipt Date: 20220720
  Transmission Date: 20221027
  Serious: No
  Sender: FDA-Public Use
  Company Number: KR-PFIZER INC-202200500817

PATIENT
  Age: 8 Year
  Sex: Female

DRUGS (1)
  1. GENOTROPIN [Suspect]
     Active Substance: SOMATROPIN
     Indication: Short stature
     Dosage: 3 IU, 6 TIMES A WEEK
     Dates: start: 20220209, end: 20220329

REACTIONS (2)
  - Poor quality device used [Unknown]
  - Device deposit issue [Unknown]
